FAERS Safety Report 7801774-X (Version None)
Quarter: 2011Q4

REPORT INFORMATION
  Report Type: 
  Country: None (occurrence: None)
  Receive Date: 20111005
  Receipt Date: 20110927
  Transmission Date: 20120403
  Serious: Yes (Hospitalization)
  Sender: FDA-Public Use
  Company Number: 2011MA014541

PATIENT
  Age: 34 Year
  Sex: Male

DRUGS (6)
  1. NAPROXEN [Suspect]
  2. ALLOPURINOL [Suspect]
     Indication: GOUT
     Dosage: 300 MG
     Dates: start: 20110531, end: 20110623
  3. SODIUM CHLORIDE [Concomitant]
  4. LEVOTHYROXINE SODIUM [Concomitant]
  5. DEXAMETHASONE [Concomitant]
  6. PENICILLIN V [Suspect]
     Indication: TONSILLITIS
     Dosage: PO
     Route: 048
     Dates: start: 20110621, end: 20110623

REACTIONS (2)
  - STEVENS-JOHNSON SYNDROME [None]
  - BLINDNESS TRANSIENT [None]
